FAERS Safety Report 5536821-1 (Version None)
Quarter: 2007Q4

REPORT INFORMATION
  Report Type: 
  Country: None (occurrence: None)
  Receive Date: 20071206
  Receipt Date: 20070327
  Transmission Date: 20080405
  Serious: Yes (Other)
  Sender: FDA-Public Use
  Company Number: US-AMGEN-US217199

PATIENT
  Sex: Male

DRUGS (2)
  1. ENBREL [Suspect]
     Indication: PSORIATIC ARTHROPATHY
     Route: 058
     Dates: start: 20030530
  2. SULFASALAZINE [Concomitant]
     Route: 048
     Dates: start: 20000101

REACTIONS (4)
  - EAR INFECTION [None]
  - FOOT DEFORMITY [None]
  - PITTING OEDEMA [None]
  - PROSTATE CANCER [None]
